FAERS Safety Report 23446405 (Version 1)
Quarter: 2024Q1

REPORT INFORMATION
  Report Type: Spontaneous
  Country: US (occurrence: None)
  Receive Date: 20240125
  Receipt Date: 20240125
  Transmission Date: 20240409
  Serious: Yes (Hospitalization)
  Sender: FDA-Public Use
  Company Number: None

PATIENT
  Sex: 0

DRUGS (2)
  1. CAPECITABINE [Suspect]
     Active Substance: CAPECITABINE
  2. FLUOROURACIL [Suspect]
     Active Substance: FLUOROURACIL

REACTIONS (7)
  - Toxicity to various agents [None]
  - Rash [None]
  - Diarrhoea [None]
  - Hypokalaemia [None]
  - Metabolic acidosis [None]
  - Leukopenia [None]
  - Acute kidney injury [None]

NARRATIVE: CASE EVENT DATE: 20240112
